FAERS Safety Report 19920825 (Version 1)
Quarter: 2021Q4

REPORT INFORMATION
  Report Type: Spontaneous
  Country: US (occurrence: US)
  Receive Date: 20211005
  Receipt Date: 20211005
  Transmission Date: 20220303
  Serious: No
  Sender: FDA-Public Use
  Company Number: US-ADAMAS PHARMA, LLC-2020ADA02098

PATIENT
  Sex: Female

DRUGS (19)
  1. GOCOVRI [Suspect]
     Active Substance: AMANTADINE
     Indication: Parkinson^s disease
     Dosage: 137 MG, 1X/DAY AT NIGHT
     Dates: start: 20180827
  2. CARBIDOPA\LEVODOPA [Concomitant]
     Active Substance: CARBIDOPA\LEVODOPA
  3. DESMOPRESSIN [Concomitant]
     Active Substance: DESMOPRESSIN
  4. ENBREL [Concomitant]
     Active Substance: ETANERCEPT
  5. LEXAPRO [Concomitant]
     Active Substance: ESCITALOPRAM OXALATE
  6. LEFLUNOMIDE [Concomitant]
     Active Substance: LEFLUNOMIDE
  7. LINZESS [Concomitant]
     Active Substance: LINACLOTIDE
  8. MYRBETRIQ [Concomitant]
     Active Substance: MIRABEGRON
  9. RASAGILINE [Concomitant]
     Active Substance: RASAGILINE
  10. ROSUVASTATIN [Concomitant]
     Active Substance: ROSUVASTATIN
  11. RYTARY [Concomitant]
     Active Substance: CARBIDOPA\LEVODOPA
  12. UNITHROID [Concomitant]
     Active Substance: LEVOTHYROXINE SODIUM
  13. ERYTHROMYCIN [Concomitant]
     Active Substance: ERYTHROMYCIN
     Route: 047
  14. RESTASIS [Concomitant]
     Active Substance: CYCLOSPORINE
  15. VITAMIN D [Concomitant]
     Active Substance: VITAMIN D NOS
  16. CALCIUM CITRATE [Concomitant]
     Active Substance: CALCIUM CITRATE
  17. PROBIOTICS NOS [Concomitant]
     Active Substance: PROBIOTICS NOS
  18. MELATONIN [Concomitant]
     Active Substance: MELATONIN
  19. MAGNESIUM [Concomitant]
     Active Substance: MAGNESIUM

REACTIONS (2)
  - Fatigue [Not Recovered/Not Resolved]
  - Hallucination [Not Recovered/Not Resolved]
